FAERS Safety Report 8874049 (Version 6)
Quarter: 2013Q2

REPORT INFORMATION
  Report Type: Spontaneous
  Country: US (occurrence: US)
  Receive Date: 20121030
  Receipt Date: 20130508
  Transmission Date: 20140414
  Serious: Yes (Hospitalization)
  Sender: FDA-Public Use
  Company Number: US-GILEAD-2012-0063637

PATIENT
  Age: 75 Year
  Sex: Female

DRUGS (1)
  1. LETAIRIS [Suspect]
     Indication: PULMONARY ARTERIAL HYPERTENSION
     Dosage: 5 MG, UNK
     Route: 048
     Dates: start: 20110404

REACTIONS (6)
  - Chest pain [Unknown]
  - Mitral valve disease [Unknown]
  - Cardiac operation [Not Recovered/Not Resolved]
  - Mitral valve replacement [Not Recovered/Not Resolved]
  - Malaise [Unknown]
  - Fluid retention [Not Recovered/Not Resolved]
